FAERS Safety Report 7988983-4 (Version None)
Quarter: 2011Q4

REPORT INFORMATION
  Report Type: 
  Country: None (occurrence: None)
  Receive Date: 20111219
  Receipt Date: 20111209
  Transmission Date: 20120403
  Serious: Yes (Hospitalization)
  Sender: FDA-Public Use
  Company Number: PHEH2011US04088

PATIENT
  Sex: Male
  Weight: 35 kg

DRUGS (1)
  1. EXJADE [Suspect]
     Dosage: 750 MG, QD
     Route: 048

REACTIONS (3)
  - SICKLE CELL ANAEMIA WITH CRISIS [None]
  - LIMB INJURY [None]
  - POST PROCEDURAL INFECTION [None]
